FAERS Safety Report 5546704-9 (Version None)
Quarter: 2007Q4

REPORT INFORMATION
  Report Type: 
  Country: None (occurrence: None)
  Receive Date: 20071211
  Receipt Date: 20071203
  Transmission Date: 20080405
  Serious: Yes (Hospitalization)
  Sender: FDA-Public Use
  Company Number: FR-ROCHE-534813

PATIENT
  Age: 85 Year
  Sex: Male

DRUGS (7)
  1. CEFTRIAXONE SODIUM [Suspect]
     Indication: DRUG USE FOR UNKNOWN INDICATION
     Dosage: FORM: INJECTABLE SOLUTION.
     Route: 030
     Dates: start: 20070801, end: 20070806
  2. BACTRIM [Suspect]
     Indication: DRUG USE FOR UNKNOWN INDICATION
     Dosage: DOSING REGIMEN: 1 DOSE BID.
     Route: 048
     Dates: start: 20070801, end: 20070806
  3. INEXIUM [Concomitant]
  4. AMLOR [Concomitant]
  5. CALCIDIA [Concomitant]
  6. LASIX [Concomitant]
  7. HEMIGOXINE NATIVELLE [Concomitant]
     Dosage: DRUG NAME: HEMIGOXINE.

REACTIONS (1)
  - HYPOGLYCAEMIA [None]
